FAERS Safety Report 9438122 (Version 3)
Quarter: 2013Q4

REPORT INFORMATION
  Report Type: Report from Study
  Country: GB (occurrence: GB)
  Receive Date: 20130802
  Receipt Date: 20131010
  Transmission Date: 20140711
  Serious: Yes (Hospitalization)
  Sender: FDA-Public Use
  Company Number: GB-PFIZER INC-2013216677

PATIENT
  Age: 53 Year
  Sex: Female
  Weight: 79.5 kg

DRUGS (9)
  1. CRIZOTINIB [Suspect]
     Indication: NON-SMALL CELL LUNG CANCER
     Dosage: 250 MG, 2X/DAY (CONTINUOUS)
     Route: 048
     Dates: start: 20130515
  2. WARFARIN [Concomitant]
     Indication: CARDIAC VALVE PROSTHESIS USER
     Dosage: UNK
     Dates: start: 2003
  3. ENALAPRIL [Concomitant]
     Indication: HYPERTENSION
     Dosage: UNK
     Dates: start: 20120201
  4. LEVOTHYROXINE [Concomitant]
     Indication: HYPOTHYROIDISM
     Dosage: UNK
     Dates: start: 20120601
  5. LORATADINE [Concomitant]
     Indication: SEASONAL ALLERGY
     Dosage: UNK
     Dates: start: 201106
  6. CODEINE LINCTUS [Concomitant]
     Indication: COUGH
     Dosage: UNK
     Dates: start: 20130410
  7. ATENOLOL [Concomitant]
     Indication: HYPERTENSION
     Dosage: 25 UNK, UNK
     Dates: start: 20130525
  8. FUROSEMIDE [Concomitant]
     Dosage: 80 MG, 1X/DAY
     Route: 048
     Dates: start: 20130605
  9. BISOPROLOL FUMARATE [Concomitant]
     Dosage: 5 MG, 1X/DAY
     Route: 048
     Dates: start: 20130722

REACTIONS (1)
  - Palpitations [Recovered/Resolved]
